FAERS Safety Report 4421796-9 (Version None)
Quarter: 2004Q3

REPORT INFORMATION
  Report Type: 
  Country: None (occurrence: None)
  Receive Date: 20040806
  Receipt Date: 20040719
  Transmission Date: 20050211
  Serious: Yes (Other)
  Sender: FDA-Public Use
  Company Number: 2004044315

PATIENT
  Age: 62 Year
  Sex: Male
  Weight: 60 kg

DRUGS (1)
  1. ALOSTIL 2% (MINOXIDIL) [Suspect]
     Indication: ALOPECIA
     Dosage: 1 ML PER DAY, TOPICAL
     Route: 061
     Dates: start: 19890101, end: 20040629

REACTIONS (3)
  - BASAL CELL CARCINOMA [None]
  - MYOCARDIAL INFARCTION [None]
  - SKIN DISORDER [None]
